FAERS Safety Report 24722205 (Version 2)
Quarter: 2024Q4

REPORT INFORMATION
  Report Type: Spontaneous
  Country: US (occurrence: US)
  Receive Date: 20241211
  Receipt Date: 20241227
  Transmission Date: 20250115
  Serious: Yes (Other)
  Sender: BRISTOL-MYERS SQUIBB COMPANY
  Company Number: US-BRISTOL-MYERS SQUIBB COMPANY-2024-187602

PATIENT
  Age: 52 Year
  Sex: Female

DRUGS (1)
  1. ZEPOSIA [Suspect]
     Active Substance: OZANIMOD HYDROCHLORIDE
     Indication: Colitis ulcerative
     Route: 048
     Dates: start: 202312

REACTIONS (6)
  - Fistula discharge [Unknown]
  - Stress [Unknown]
  - Inflammation [Unknown]
  - Photosensitivity reaction [Unknown]
  - Abscess rupture [Unknown]
  - Anal abscess [Unknown]

NARRATIVE: CASE EVENT DATE: 20240101
